FAERS Safety Report 5722435-7 (Version None)
Quarter: 2008Q2

REPORT INFORMATION
  Report Type: 
  Country: None (occurrence: None)
  Receive Date: 20080429
  Receipt Date: 20071114
  Transmission Date: 20081010
  Serious: No
  Sender: FDA-Public Use
  Company Number: US-ASTRAZENECA-2007UW26450

PATIENT
  Age: 68 Year
  Sex: Female
  Weight: 53.1 kg

DRUGS (7)
  1. NEXIUM [Suspect]
     Indication: DYSPEPSIA
     Route: 048
  2. CATAPRES [Concomitant]
  3. LIPITOR [Concomitant]
  4. DARVOCET [Concomitant]
  5. TYLENOL [Concomitant]
  6. GAVISCON [Concomitant]
  7. ALPRAZOLAM [Concomitant]

REACTIONS (1)
  - TOOTH DISORDER [None]
